FAERS Safety Report 7034117-2 (Version None)
Quarter: 2010Q4

REPORT INFORMATION
  Report Type: 
  Country: None (occurrence: None)
  Receive Date: 20101008
  Receipt Date: 20100727
  Transmission Date: 20110411
  Serious: Yes (Hospitalization, Other)
  Sender: FDA-Public Use
  Company Number: US-BAYER-201010164NA

PATIENT
  Age: 26 Year
  Sex: Female
  Weight: 88 kg

DRUGS (4)
  1. YASMIN [Suspect]
     Indication: CONTRACEPTION
     Route: 048
     Dates: start: 20050501, end: 20080717
  2. OCELLA [Suspect]
     Indication: CONTRACEPTION
     Dates: start: 20080701, end: 20081001
  3. ADVIL LIQUI-GELS [Concomitant]
     Indication: PAIN
  4. TYLENOL PM [Concomitant]
     Indication: PAIN

REACTIONS (6)
  - ABDOMINAL PAIN UPPER [None]
  - CHOLECYSTITIS ACUTE [None]
  - CHOLELITHIASIS [None]
  - NAUSEA [None]
  - PAIN [None]
  - VOMITING [None]
